FAERS Safety Report 5714171-8 (Version None)
Quarter: 2008Q2

REPORT INFORMATION
  Report Type: 
  Country: None (occurrence: None)
  Receive Date: 20080423
  Receipt Date: 20070821
  Transmission Date: 20081010
  Serious: No
  Sender: FDA-Public Use
  Company Number: US-KINGPHARMUSA00001-K200701060

PATIENT

DRUGS (8)
  1. SKELAXIN [Suspect]
     Indication: BACK DISORDER
     Dosage: 800 MG, TID
     Route: 048
     Dates: start: 20070820
  2. PROPRANOLOL [Suspect]
  3. COUMADIN [Suspect]
  4. PROVENTIL   /00139501/ [Concomitant]
  5. DIGOXIN [Concomitant]
  6. VALIUM [Concomitant]
  7. LIPITOR [Concomitant]
  8. CENTRUM SILVER  /01292501/ [Concomitant]
     Dosage: UNK, UNK

REACTIONS (2)
  - HEART RATE ABNORMAL [None]
  - PALPITATIONS [None]
